FAERS Safety Report 20574719 (Version 1)
Quarter: 2022Q1

REPORT INFORMATION
  Report Type: Spontaneous
  Country: US (occurrence: US)
  Receive Date: 20220309
  Receipt Date: 20220309
  Transmission Date: 20220424
  Serious: Yes (Death, Other)
  Sender: FDA-Public Use
  Company Number: US-SUN PHARMACEUTICAL INDUSTRIES LTD-2022R1-328848

PATIENT
  Sex: Male

DRUGS (2)
  1. ALLOPURINOL [Suspect]
     Active Substance: ALLOPURINOL
     Indication: Supportive care
     Dosage: UNK
     Route: 065
  2. RASBURICASE [Suspect]
     Active Substance: RASBURICASE
     Indication: Supportive care
     Dosage: UNK
     Route: 065

REACTIONS (1)
  - Drug ineffective [Fatal]
